FAERS Safety Report 7824922-4 (Version None)
Quarter: 2011Q4

REPORT INFORMATION
  Report Type: 
  Country: None (occurrence: None)
  Receive Date: 20111019
  Receipt Date: 20110328
  Transmission Date: 20120403
  Serious: No
  Sender: FDA-Public Use
  Company Number: US-BRISTOL-MYERS SQUIBB COMPANY-15569270

PATIENT
  Sex: Female

DRUGS (5)
  1. SIMVASTATIN [Concomitant]
  2. TERAZOSIN HCL [Concomitant]
  3. HYDROCHLOROTHIAZIDE [Concomitant]
  4. AVALIDE [Suspect]
  5. METOPROLOL TARTRATE [Concomitant]
     Dosage: METOPROLOL ER

REACTIONS (1)
  - BLOOD PRESSURE INADEQUATELY CONTROLLED [None]
